FAERS Safety Report 6215862-5 (Version None)
Quarter: 2009Q2

REPORT INFORMATION
  Report Type: 
  Country: None (occurrence: None)
  Receive Date: 20090605
  Receipt Date: 20090603
  Transmission Date: 20091009
  Serious: Yes (Disabling)
  Sender: FDA-Public Use
  Company Number: FR-JNJFOC-20090201369

PATIENT
  Sex: Male

DRUGS (2)
  1. OFLOCET [Suspect]
     Indication: ENTEROBACTER SEPSIS
     Route: 048
  2. SALMETEROL [Concomitant]
     Indication: ASTHMA
     Route: 030

REACTIONS (6)
  - DEPRESSION [None]
  - FATIGUE [None]
  - IRRITABILITY [None]
  - MUSCLE RUPTURE [None]
  - MUSCULOSKELETAL DISCOMFORT [None]
  - TENDONITIS [None]
